FAERS Safety Report 6679874-X (Version None)
Quarter: 2010Q2

REPORT INFORMATION
  Report Type: 
  Country: None (occurrence: None)
  Receive Date: 20100409
  Receipt Date: 20100331
  Transmission Date: 20101027
  Serious: Yes (Other)
  Sender: FDA-Public Use
  Company Number: SPLN20100048 (0)

PATIENT
  Age: 9 Year
  Sex: Male

DRUGS (1)
  1. SUPPRELIN LA [Suspect]
     Indication: PRECOCIOUS PUBERTY
     Dosage: 1 IN 1 Y, SUB Q IMPLANT
     Dates: start: 20100201

REACTIONS (3)
  - DEPRESSION [None]
  - HYPERTRICHOSIS [None]
  - SUICIDAL IDEATION [None]
